FAERS Safety Report 9303931 (Version 1)
Quarter: 2013Q2

REPORT INFORMATION
  Report Type: Spontaneous
  Country: US (occurrence: US)
  Receive Date: 20130522
  Receipt Date: 20130522
  Transmission Date: 20140414
  Serious: Yes (Other)
  Sender: FDA-Public Use
  Company Number: US-JNJFOC-20130507298

PATIENT
  Sex: Male
  Weight: 70.76 kg

DRUGS (8)
  1. XARELTO [Suspect]
     Indication: CEREBROVASCULAR ACCIDENT PROPHYLAXIS
     Route: 048
     Dates: start: 2013
  2. XARELTO [Suspect]
     Indication: ATRIAL FIBRILLATION
     Route: 048
     Dates: start: 2013
  3. EFFEXOR [Suspect]
     Indication: PRODUCT USED FOR UNKNOWN INDICATION
     Route: 065
     Dates: start: 201303, end: 201303
  4. LORAZEPAM [Suspect]
     Indication: ANXIETY
     Route: 048
  5. DIGOXIN [Concomitant]
     Route: 065
  6. AMOXICILLIN [Concomitant]
     Indication: TOOTH INFECTION
     Route: 065
     Dates: start: 201305
  7. DILTIAZEM [Concomitant]
     Indication: ATRIAL FIBRILLATION
     Route: 065
  8. ARMOUR THYROID [Concomitant]
     Indication: THYROID DISORDER
     Route: 065

REACTIONS (4)
  - Weight decreased [Not Recovered/Not Resolved]
  - Skin lesion [Not Recovered/Not Resolved]
  - Pruritus [Not Recovered/Not Resolved]
  - Rash [Not Recovered/Not Resolved]
